FAERS Safety Report 10149176 (Version 4)
Quarter: 2014Q2

REPORT INFORMATION
  Report Type: Spontaneous
  Country: GB (occurrence: None)
  Receive Date: 20140430
  Receipt Date: 20140520
  Transmission Date: 20141212
  Serious: Yes (Hospitalization)
  Sender: FDA-Public Use
  Company Number: AUR-APL-2014-05110

PATIENT
  Age: 31 Year
  Sex: Male

DRUGS (4)
  1. FLUOXETINE [Suspect]
     Indication: SCHIZOPHRENIA, PARANOID TYPE
     Dosage: 1 IN 1 D
  2. FLUOXETINE [Suspect]
     Indication: PSYCHOTIC DISORDER
     Dosage: 1 IN 1 D
  3. CLOZAPINE [Suspect]
     Indication: SCHIZOPHRENIA, PARANOID TYPE
     Route: 048
  4. CLOZAPINE [Suspect]
     Indication: PSYCHOTIC DISORDER
     Route: 048

REACTIONS (9)
  - Psychotic disorder [None]
  - Disease recurrence [None]
  - Hallucination [None]
  - Paranoia [None]
  - Anxiety [None]
  - Sedation [None]
  - Incorrect dose administered [None]
  - Feeling abnormal [None]
  - Thinking abnormal [None]
